FAERS Safety Report 8072634-7 (Version None)
Quarter: 2012Q1

REPORT INFORMATION
  Report Type: 
  Country: None (occurrence: None)
  Receive Date: 20120126
  Receipt Date: 20120118
  Transmission Date: 20120608
  Serious: Yes (Hospitalization)
  Sender: FDA-Public Use
  Company Number: US-BAYER-2011-037246

PATIENT
  Age: 28 Year
  Sex: Female

DRUGS (6)
  1. PHENERGAN [Concomitant]
     Dosage: 25 MG, UNK
     Route: 048
     Dates: start: 20090225, end: 20090311
  2. LEXAPRO [Concomitant]
  3. YAZ [Suspect]
     Indication: PRODUCT USED FOR UNKNOWN INDICATION
     Dosage: UNK
     Route: 048
     Dates: start: 20080828, end: 20090311
  4. SEROQUEL [Concomitant]
  5. IMODIUM [Concomitant]
     Dosage: 2 MG, UNK
     Route: 048
     Dates: start: 20090225, end: 20090311
  6. XANAX [Concomitant]
     Dosage: 0.25 MG, UNK
     Dates: start: 20090225, end: 20090311

REACTIONS (5)
  - INJURY [None]
  - ANXIETY [None]
  - ANHEDONIA [None]
  - DEEP VEIN THROMBOSIS [None]
  - PAIN [None]
